FAERS Safety Report 4942845-5 (Version None)
Quarter: 2006Q1

REPORT INFORMATION
  Report Type: 
  Country: None (occurrence: None)
  Receive Date: 20060314
  Receipt Date: 20060301
  Transmission Date: 20060701
  Serious: Yes (Other)
  Sender: FDA-Public Use
  Company Number: PHNU2006DE01227

PATIENT
  Age: 60 Year
  Sex: Male

DRUGS (2)
  1. SANDIMMUNE [Suspect]
     Indication: RENAL TRANSPLANT
  2. CELLCEPT [Concomitant]

REACTIONS (1)
  - APHASIA [None]
